FAERS Safety Report 18230115 (Version 1)
Quarter: 2020Q3

REPORT INFORMATION
  Report Type: Spontaneous
  Country: US (occurrence: US)
  Receive Date: 20200903
  Receipt Date: 20200903
  Transmission Date: 20201103
  Serious: No
  Sender: FDA-Public Use
  Company Number: US-TEVA-2020-US-1822577

PATIENT
  Sex: Male

DRUGS (1)
  1. BUPRENORPHINE. [Suspect]
     Active Substance: BUPRENORPHINE
     Dosage: ONE TABLET ONE TIME A DAY AND NOT NEED ANOTHER FOR ABOUT 72 HOURS
     Route: 060

REACTIONS (1)
  - Withdrawal syndrome [Unknown]
